FAERS Safety Report 5475641-3 (Version None)
Quarter: 2007Q3

REPORT INFORMATION
  Report Type: 
  Country: None (occurrence: None)
  Receive Date: 20070911
  Receipt Date: 20060822
  Transmission Date: 20080115
  Serious: No
  Sender: FDA-Public Use
  Company Number: 06H-163-0309688-00

PATIENT

DRUGS (1)
  1. VANCOMYCIN HCL [Suspect]
     Indication: PYREXIA
     Dosage: 1000 MG, 1 IN 1 D, INTRAVENOUS
     Route: 042
     Dates: start: 20060707, end: 20060707

REACTIONS (2)
  - PRURITUS [None]
  - UNEVALUABLE EVENT [None]
